FAERS Safety Report 15080248 (Version 2)
Quarter: 2018Q3

REPORT INFORMATION
  Report Type: Spontaneous
  Country: PT (occurrence: PT)
  Receive Date: 20180628
  Receipt Date: 20180831
  Transmission Date: 20181010
  Serious: Yes (Disabling)
  Sender: FDA-Public Use
  Company Number: PT-TEVA-2018-PT-913166

PATIENT
  Age: 67 Year
  Sex: Male

DRUGS (9)
  1. LAVENTAIR [Concomitant]
     Dosage: 55 MILLIGRAM DAILY;
  2. METFORMIN [Concomitant]
     Active Substance: METFORMIN HYDROCHLORIDE
     Dosage: 500 MILLIGRAM DAILY; FOR LUNCH
  3. DIPLEXIL [Suspect]
     Active Substance: VALPROATE SODIUM
     Indication: EPILEPSY
     Dosage: 2000 MILLIGRAM DAILY;
     Route: 048
     Dates: start: 20180131, end: 20180515
  4. PRAVAFENIX [Concomitant]
     Active Substance: FENOFIBRATE\PRAVASTATIN
     Dosage: 1 AT NIGHT
  5. CLOPIDOGREL [Concomitant]
     Active Substance: CLOPIDOGREL BISULFATE
     Dosage: 75 MILLIGRAM DAILY; AT LUNCH
  6. SERTRALINE [Suspect]
     Active Substance: SERTRALINE HYDROCHLORIDE
     Dosage: 50 MILLIGRAM DAILY; 1 PILL FOR DINNER
     Route: 048
     Dates: start: 20180222
  7. CO?DIOVAN 160 MG/ 12,5 MG [Concomitant]
     Dosage: 1 MORNING PILL
  8. MYSOLINE [Concomitant]
     Active Substance: PRIMIDONE
     Dosage: 1/8 AT BEDTIME.
  9. PANTOPRAZOLE [Concomitant]
     Active Substance: PANTOPRAZOLE
     Dosage: 20 MILLIGRAM DAILY; 20 MG FASTING

REACTIONS (10)
  - Muscle spasms [Recovering/Resolving]
  - Tremor [Recovering/Resolving]
  - Somnolence [Recovered/Resolved]
  - Hypokinesia [Recovering/Resolving]
  - Muscle tightness [Recovered/Resolved]
  - Coordination abnormal [Recovering/Resolving]
  - Skin discolouration [Recovered/Resolved]
  - Hyperhidrosis [Recovered/Resolved]
  - Muscular weakness [Recovering/Resolving]
  - Muscle contractions involuntary [Recovering/Resolving]

NARRATIVE: CASE EVENT DATE: 20180222
